FAERS Safety Report 4316428-4 (Version None)
Quarter: 2004Q1

REPORT INFORMATION
  Report Type: 
  Country: None (occurrence: None)
  Receive Date: 20040312
  Receipt Date: 20040312
  Transmission Date: 20041129
  Serious: Yes (Disabling)
  Sender: FDA-Public Use
  Company Number: None

PATIENT
  Age: 54 Year
  Sex: Female
  Weight: 56.246 kg

DRUGS (3)
  1. FOSAMAX [Suspect]
     Indication: OSTEOPOROSIS
     Dosage: DAILY
     Dates: start: 19951008, end: 20010410
  2. SYNTHROID [Concomitant]
  3. FOSAMAX [Suspect]
     Indication: OSTEOPOROSIS
     Dosage: WEEKLY
     Dates: start: 20010417, end: 20021105

REACTIONS (6)
  - ARTHRITIS [None]
  - ARTHROPATHY [None]
  - KERATOCONJUNCTIVITIS SICCA [None]
  - MUSCULAR WEAKNESS [None]
  - PAIN [None]
  - TENDONITIS [None]
